FAERS Safety Report 10206959 (Version 1)
Quarter: 2014Q2

REPORT INFORMATION
  Report Type: Spontaneous
  Country: US (occurrence: US)
  Receive Date: 20140530
  Receipt Date: 20140530
  Transmission Date: 20141212
  Serious: No
  Sender: FDA-Public Use
  Company Number: US-MYLANLABS-2013S1016476

PATIENT
  Age: 64 Year
  Sex: Female
  Weight: 71.67 kg

DRUGS (2)
  1. BUPROPION HYDROCHLORIDE EXTENDED-RELEASE TABLETS USP, (SR) [Suspect]
     Indication: SMOKING CESSATION THERAPY
     Route: 048
     Dates: start: 20130719
  2. GLUMETZA [Concomitant]

REACTIONS (2)
  - Drug effect decreased [Not Recovered/Not Resolved]
  - Tobacco user [Not Recovered/Not Resolved]
